FAERS Safety Report 10280132 (Version 3)
Quarter: 2014Q3

REPORT INFORMATION
  Report Type: Spontaneous
  Country: US (occurrence: None)
  Receive Date: 20140702
  Receipt Date: 20140820
  Transmission Date: 20150326
  Serious: Yes (Other)
  Sender: FDA-Public Use
  Company Number: 20140366

PATIENT
  Age: 17 Year
  Sex: Female

DRUGS (1)
  1. LEVETIRACETAM INJECTION (0517-3605-01) 500 MG/5 ML [Suspect]
     Active Substance: LEVETIRACETAM
     Indication: CONVULSION
     Dosage: UNKNOWN

REACTIONS (7)
  - Tubulointerstitial nephritis [None]
  - Renal failure [None]
  - Nephritis allergic [None]
  - Flank pain [None]
  - Eosinophilic cystitis [None]
  - Hydronephrosis [None]
  - Fatigue [None]
